FAERS Safety Report 18068061 (Version 1)
Quarter: 2020Q3

REPORT INFORMATION
  Report Type: Spontaneous
  Country: CA (occurrence: CA)
  Receive Date: 20200724
  Receipt Date: 20200724
  Transmission Date: 20201103
  Serious: Yes (Other)
  Sender: FDA-Public Use
  Company Number: CA-FRESENIUS KABI-FK202007483

PATIENT
  Age: 3 Year
  Sex: Female

DRUGS (2)
  1. PROPOFOL (MANUFACTURER UNKNOWN) [Suspect]
     Active Substance: PROPOFOL
     Indication: SEDATIVE THERAPY
     Route: 065
  2. PROPOFOL (MANUFACTURER UNKNOWN) [Suspect]
     Active Substance: PROPOFOL
     Indication: LUMBAR PUNCTURE

REACTIONS (3)
  - Airway complication of anaesthesia [Recovered/Resolved]
  - Skin discolouration [Recovered/Resolved]
  - Oxygen saturation decreased [Recovered/Resolved]
